FAERS Safety Report 9828883 (Version 3)
Quarter: 2014Q2

REPORT INFORMATION
  Report Type: Report from Study
  Country: JP (occurrence: JP)
  Receive Date: 20140118
  Receipt Date: 20140425
  Transmission Date: 20141212
  Serious: Yes (Death, Hospitalization)
  Sender: FDA-Public Use
  Company Number: JP-ABBVIE-14P-087-1191782-00

PATIENT
  Age: 70 Year
  Sex: Male

DRUGS (9)
  1. LIPACREON [Suspect]
     Indication: PANCREATIC INSUFFICIENCY
     Route: 048
     Dates: start: 20130718, end: 20131209
  2. LANSOPRAZOLE [Concomitant]
     Indication: PANCREATIC INSUFFICIENCY
     Route: 048
     Dates: end: 20131209
  3. MOSAPRIDE CITRATE [Concomitant]
     Indication: PANCREATIC INSUFFICIENCY
     Route: 048
     Dates: end: 20131209
  4. GIMERACIL W/OTERACIL POTASSIUM/TEGAFUR [Concomitant]
     Indication: PRODUCT USED FOR UNKNOWN INDICATION
     Route: 048
     Dates: start: 20131105, end: 20131112
  5. DAIKENCHUUTOU [Concomitant]
     Indication: CONSTIPATION
     Dates: start: 20131105, end: 20131117
  6. LOXOPROFEN SODIUM [Concomitant]
     Indication: CANCER PAIN
     Route: 048
     Dates: start: 20131105, end: 20131209
  7. REBAMIPIDE [Concomitant]
     Indication: PROPHYLAXIS
     Route: 048
     Dates: start: 20131105, end: 20131209
  8. REBAMIPIDE [Concomitant]
     Indication: GASTRIC DISORDER
  9. MAGNESIUM OXIDE [Concomitant]
     Indication: CONSTIPATION
     Route: 048
     Dates: start: 20131115, end: 20131209

REACTIONS (3)
  - Pancreatic carcinoma [Fatal]
  - Cancer pain [Not Recovered/Not Resolved]
  - Constipation [Recovered/Resolved]
